FAERS Safety Report 15423513 (Version 2)
Quarter: 2019Q3

REPORT INFORMATION
  Report Type: Spontaneous
  Country: US (occurrence: US)
  Receive Date: 20180925
  Receipt Date: 20190717
  Transmission Date: 20191004
  Serious: Yes (Hospitalization, Other)
  Sender: FDA-Public Use
  Company Number: US-PFIZER INC-2018383636

PATIENT
  Age: 75 Year
  Sex: Female
  Weight: 65.76 kg

DRUGS (1)
  1. XELJANZ XR [Suspect]
     Active Substance: TOFACITINIB CITRATE
     Indication: RHEUMATOID ARTHRITIS
     Dosage: 11 MG, 1X/DAY
     Route: 048
     Dates: start: 201801

REACTIONS (4)
  - Gait disturbance [Unknown]
  - Sepsis [Recovered/Resolved with Sequelae]
  - Peau d^orange [Recovered/Resolved with Sequelae]
  - Drug intolerance [Unknown]

NARRATIVE: CASE EVENT DATE: 20190703
